FAERS Safety Report 4638709-7 (Version None)
Quarter: 2005Q2

REPORT INFORMATION
  Report Type: 
  Country: None (occurrence: None)
  Receive Date: 20050418
  Receipt Date: 20050418
  Transmission Date: 20051028
  Serious: Yes (Death, Life-Threatening, Hospitalization)
  Sender: FDA-Public Use
  Company Number: None

PATIENT
  Age: 59 Year
  Sex: Female
  Weight: 85 kg

DRUGS (10)
  1. COUMADIN [Suspect]
     Indication: DEEP VEIN THROMBOSIS
     Dosage: PO QD     APPROXIMATELY 6/5/04
     Route: 048
     Dates: start: 20040605
  2. LOVENOX [Suspect]
     Indication: DEEP VEIN THROMBOSIS
     Dosage: SC
     Route: 058
     Dates: start: 20040601
  3. ALTACE [Concomitant]
  4. METFORMIN HCL [Concomitant]
  5. AVANDIA [Concomitant]
  6. LEVAQUIN [Concomitant]
  7. ATENOLOL [Concomitant]
  8. PAXIL [Concomitant]
  9. NEURONTIN [Concomitant]
  10. LIPITOR [Concomitant]

REACTIONS (7)
  - BLUE TOE SYNDROME [None]
  - CORONARY ARTERY DISEASE [None]
  - FAT EMBOLISM [None]
  - INTERNATIONAL NORMALISED RATIO INCREASED [None]
  - RHABDOMYOLYSIS [None]
  - SEPSIS [None]
  - VENOUS STASIS [None]
